FAERS Safety Report 7989662-X (Version None)
Quarter: 2011Q4

REPORT INFORMATION
  Report Type: 
  Country: None (occurrence: None)
  Receive Date: 20111219
  Receipt Date: 20111213
  Transmission Date: 20120403
  Serious: No
  Sender: FDA-Public Use
  Company Number: US-BAYER-2011-121224

PATIENT
  Age: 64 Year
  Sex: Male
  Weight: 95 kg

DRUGS (3)
  1. ASPIRIN [Suspect]
     Dosage: UNK
     Dates: start: 20111101
  2. PREDNISONE TAB [Concomitant]
  3. FUROSEMIDE [Concomitant]

REACTIONS (1)
  - URTICARIA [None]
